FAERS Safety Report 14312984 (Version 2)
Quarter: 2017Q4

REPORT INFORMATION
  Report Type: Spontaneous
  Country: IT (occurrence: IT)
  Receive Date: 20171221
  Receipt Date: 20171221
  Transmission Date: 20180321
  Serious: Yes (Other)
  Sender: FDA-Public Use
  Company Number: PHHY2017IT191009

PATIENT

DRUGS (5)
  1. CARFILZOMIB [Suspect]
     Active Substance: CARFILZOMIB
     Indication: PLASMA CELL MYELOMA
     Dosage: 20 MG/M2, DAY 1 AND 2 IN 28 DAYS CYCLE OF FIRST CYCLE
     Route: 042
  2. LENALIDOMIDE [Suspect]
     Active Substance: LENALIDOMIDE
     Indication: PLASMA CELL MYELOMA
     Dosage: 25 MG, QD DAY 1 TO 21
     Route: 065
  3. CARFILZOMIB [Suspect]
     Active Substance: CARFILZOMIB
     Dosage: 27 MG/M2, ON 8, 9, 15, AND 16 OF FIRST CYCLE AND DAY 1, 2, 8, 9, 15, AND 16 IN 28 DAYS TILL CYCLE 12
     Route: 042
  4. DEXAMETHASONE. [Suspect]
     Active Substance: DEXAMETHASONE
     Indication: PLASMA CELL MYELOMA
     Dosage: 40 MG, ON DAYS 1, 8, 15, 16
     Route: 065
  5. CARFILZOMIB [Suspect]
     Active Substance: CARFILZOMIB
     Dosage: 27 MG/M2, ON DAY 1, 2, 15, AND 16 IN 28 DAYS CYCLE FROM CYCLE 13 TO 18
     Route: 042

REACTIONS (1)
  - Neutropenia [Unknown]
